FAERS Safety Report 9390322 (Version 1)
Quarter: 2013Q3

REPORT INFORMATION
  Report Type: Spontaneous
  Country: US (occurrence: US)
  Receive Date: 20130709
  Receipt Date: 20130709
  Transmission Date: 20140515
  Serious: No
  Sender: FDA-Public Use
  Company Number: US-009507513-1307USA003275

PATIENT
  Age: 81 Year
  Sex: Male

DRUGS (8)
  1. CARBIDOPA (+) LEVODOPA [Suspect]
     Indication: PARKINSON^S DISEASE
     Dosage: 2.5 PILLS, Q3H, GIVEN 5 TIMES A DAY
  2. CARBIDOPA (+) LEVODOPA [Suspect]
     Dosage: 1.5 PILLS, TID
  3. CARBIDOPA (+) LEVODOPA [Suspect]
     Dosage: 2 PILLS, Q2H
  4. CARBIDOPA (+) LEVODOPA [Suspect]
     Dosage: 1.5 TABLETS, Q2H, TOTAL OF FIVE TO SIX DOSES A DAY
  5. RASAGILINE [Concomitant]
     Dosage: 1 MG, QD
  6. APOMORPHINE HYDROCHLORIDE [Concomitant]
     Dosage: UPTO 5 TIMES A DAY, PRN
  7. APOMORPHINE HYDROCHLORIDE [Concomitant]
     Dosage: UP  TO FIVE TIMES  A DAY
  8. APOMORPHINE HYDROCHLORIDE [Concomitant]
     Dosage: UPTO 5 DOSES A DAY, PRN

REACTIONS (2)
  - Intentional overdose [Unknown]
  - Drug administration error [Unknown]
